FAERS Safety Report 5115850-6 (Version None)
Quarter: 2006Q3

REPORT INFORMATION
  Report Type: 
  Country: None (occurrence: None)
  Receive Date: 20060926
  Receipt Date: 20060926
  Transmission Date: 20061208
  Serious: Yes (Life-Threatening, Hospitalization)
  Sender: FDA-Public Use
  Company Number: None

PATIENT
  Age: 41 Year
  Sex: Female
  Weight: 127.0072 kg

DRUGS (4)
  1. MONTELUKAST   10 MG    MERCK [Suspect]
     Indication: RHINITIS ALLERGIC
     Dosage: 10 MG  QHS   PO
     Route: 048
     Dates: start: 20060510, end: 20060922
  2. LORATADINE [Concomitant]
  3. FLUTICASONE PROPIONATE [Concomitant]
  4. TRIAMTERENE AND HYDROCHLOROTHIAZIDE [Concomitant]

REACTIONS (6)
  - ACUTE PRERENAL FAILURE [None]
  - HEPATITIS CHOLESTATIC [None]
  - NEPHROLITHIASIS [None]
  - THROMBOCYTOPENIA [None]
  - URINARY TRACT INFECTION [None]
  - WHITE BLOOD CELL COUNT INCREASED [None]
